FAERS Safety Report 10644870 (Version 2)
Quarter: 2017Q1

REPORT INFORMATION
  Report Type: Report from Study
  Country: FR (occurrence: FR)
  Receive Date: 20141211
  Receipt Date: 20170126
  Transmission Date: 20170428
  Serious: Yes (Other)
  Sender: FDA-Public Use
  Company Number: FR-ROCHE-1502807

PATIENT

DRUGS (2)
  1. RITUXIMAB [Suspect]
     Active Substance: RITUXIMAB
     Indication: MYASTHENIA GRAVIS
     Dosage: 1000 MG OR 375 MG/M2 INFUSION
     Route: 042
  2. PREDNISONE. [Concomitant]
     Active Substance: PREDNISONE

REACTIONS (9)
  - Neutropenia [Unknown]
  - Influenza like illness [Unknown]
  - Pneumonia [Unknown]
  - Atrial fibrillation [Unknown]
  - Myocarditis [Unknown]
  - Bronchitis [Unknown]
  - Hot flush [Unknown]
  - Paraesthesia [Unknown]
  - Drug resistance [Unknown]
